FAERS Safety Report 10213658 (Version 1)
Quarter: 2014Q2

REPORT INFORMATION
  Report Type: Spontaneous
  Country: FR (occurrence: None)
  Receive Date: 20140530
  Receipt Date: 20140530
  Transmission Date: 20141212
  Serious: Yes (Hospitalization, Other)
  Sender: FDA-Public Use
  Company Number: 2014-001501

PATIENT
  Age: 64 Year
  Sex: Female

DRUGS (5)
  1. SARAFEM [Suspect]
     Indication: MAJOR DEPRESSION
     Route: 048
  2. ROPINIROLE HYDROCHLORIDE [Suspect]
     Indication: RESTLESS LEGS SYNDROME
  3. BUPROPION HYDROCHLORIDE [Suspect]
     Indication: MAJOR DEPRESSION
  4. AGOMELATINE (AGOMELATINE) [Concomitant]
  5. TRAMADOL (TRAMADOL) [Concomitant]

REACTIONS (7)
  - Withdrawal syndrome [None]
  - Major depression [None]
  - Impulse-control disorder [None]
  - Condition aggravated [None]
  - Restless legs syndrome [None]
  - Compulsive shopping [None]
  - Weight decreased [None]
